FAERS Safety Report 5807092-3 (Version None)
Quarter: 2008Q3

REPORT INFORMATION
  Report Type: 
  Country: None (occurrence: None)
  Receive Date: 20080711
  Receipt Date: 20080703
  Transmission Date: 20090109
  Serious: Yes (Hospitalization)
  Sender: FDA-Public Use
  Company Number: US-PURDUE-USA_2008_0033836

PATIENT
  Age: 55 Year
  Sex: Male

DRUGS (2)
  1. COLACE CAPSULES [Suspect]
     Indication: PROCEDURAL PAIN
     Dosage: 1 CAPSL, BID
     Route: 048
     Dates: start: 20080622, end: 20080624
  2. CITRUCEL [Concomitant]
     Indication: DRUG USE FOR UNKNOWN INDICATION
     Dosage: UNK MG, UNK
     Route: 048

REACTIONS (2)
  - MUSCLE SPASMS [None]
  - RECTAL HAEMORRHAGE [None]
